FAERS Safety Report 7212818-0 (Version None)
Quarter: 2010Q4

REPORT INFORMATION
  Report Type: 
  Country: None (occurrence: None)
  Receive Date: 20101227
  Receipt Date: 20101210
  Transmission Date: 20110411
  Serious: Yes (Other)
  Sender: FDA-Public Use
  Company Number: AUR-APL-2010-03149

PATIENT
  Sex: Male

DRUGS (1)
  1. ZOLPIDEM [Suspect]

REACTIONS (3)
  - DRUG INEFFECTIVE [None]
  - HYPERTONIC BLADDER [None]
  - INCORRECT DOSE ADMINISTERED [None]
